FAERS Safety Report 9877071 (Version 1)
Quarter: 2014Q1

REPORT INFORMATION
  Report Type: Spontaneous
  Country: JP (occurrence: JP)
  Receive Date: 20140206
  Receipt Date: 20140206
  Transmission Date: 20141002
  Serious: Yes (Other)
  Sender: FDA-Public Use
  Company Number: JP-ACCORD-021752

PATIENT
  Age: 39 Year
  Sex: Female

DRUGS (1)
  1. TACROLIMUS [Suspect]
     Indication: PROPHYLAXIS AGAINST GRAFT VERSUS HOST DISEASE
     Dosage: TROUGH LEVEL?OF TACROLIMUS WAS MAINTAINED AROUND 10 NG/ML
     Route: 048

REACTIONS (1)
  - Renal salt-wasting syndrome [Recovered/Resolved]
